FAERS Safety Report 8552252-4 (Version None)
Quarter: 2012Q3

REPORT INFORMATION
  Report Type: 
  Country: None (occurrence: None)
  Receive Date: 20120731
  Receipt Date: 20120719
  Transmission Date: 20120928
  Serious: Yes (Other)
  Sender: FDA-Public Use
  Company Number: JP-BRISTOL-MYERS SQUIBB COMPANY-16594145

PATIENT
  Age: 85 Year
  Sex: Female

DRUGS (1)
  1. HYDROXYUREA [Suspect]
     Indication: MYELOFIBROSIS
     Route: 048
     Dates: start: 19950101

REACTIONS (3)
  - PSEUDOMONAS INFECTION [None]
  - SKIN ULCER [None]
  - IMPAIRED HEALING [None]
